FAERS Safety Report 21714389 (Version 3)
Quarter: 2023Q1

REPORT INFORMATION
  Report Type: Spontaneous
  Country: US (occurrence: US)
  Receive Date: 20221212
  Receipt Date: 20230105
  Transmission Date: 20230417
  Serious: Yes (Other)
  Sender: FDA-Public Use
  Company Number: US-PFIZER INC-PV202200121033

PATIENT
  Age: 76 Year
  Sex: Female

DRUGS (1)
  1. XELJANZ [Suspect]
     Active Substance: TOFACITINIB CITRATE
     Dosage: UNK

REACTIONS (6)
  - Blindness [Unknown]
  - Neoplasm malignant [Unknown]
  - Nephrectomy [Unknown]
  - Visual impairment [Unknown]
  - Memory impairment [Unknown]
  - Confusional state [Unknown]
